FAERS Safety Report 4740831-1 (Version None)
Quarter: 2005Q3

REPORT INFORMATION
  Report Type: 
  Country: None (occurrence: None)
  Receive Date: 20050810
  Receipt Date: 20040924
  Transmission Date: 20060218
  Serious: No
  Sender: FDA-Public Use
  Company Number: US-GLAXOSMITHKLINE-A0527234A

PATIENT
  Age: 80 Year
  Sex: Male

DRUGS (3)
  1. TAGAMET HB 200 [Suspect]
  2. ZOCOR [Concomitant]
     Indication: BLOOD CHOLESTEROL INCREASED
  3. BLOOD PRESSURE MEDICATION [Concomitant]

REACTIONS (1)
  - CONSTIPATION [None]
